FAERS Safety Report 9301893 (Version 1)
Quarter: 2013Q2

REPORT INFORMATION
  Report Type: Spontaneous
  Country: DK (occurrence: DK)
  Receive Date: 20130521
  Receipt Date: 20130521
  Transmission Date: 20140414
  Serious: Yes (Hospitalization, Other)
  Sender: FDA-Public Use
  Company Number: DK-ACTAVIS-2013-08558

PATIENT
  Age: 35 Year
  Sex: Female

DRUGS (4)
  1. SALBUTAMOL (UNKNOWN) [Suspect]
     Indication: ASTHMA
     Dosage: 5 MG, SIX TIMES DAILY AND AS REQUIRED
     Route: 055
  2. IPRATROPIUM [Concomitant]
     Indication: ASTHMA
     Dosage: 0.5 MG, SIX TIMES DAILY AND AS REQUIRED
     Route: 055
  3. METHYLPREDNISOLONE [Concomitant]
     Indication: ASTHMA
     Dosage: 80 MG, UNK
     Route: 042
  4. PREDNISOLONE [Concomitant]
     Indication: ASTHMA
     Dosage: 37.5 MG, DAILY
     Route: 065

REACTIONS (2)
  - Lactic acidosis [Recovering/Resolving]
  - Sinus tachycardia [None]
